FAERS Safety Report 9402536 (Version 3)
Quarter: 2014Q1

REPORT INFORMATION
  Report Type: Report from Study
  Country: DE (occurrence: DE)
  Receive Date: 20130716
  Receipt Date: 20140120
  Transmission Date: 20141002
  Serious: Yes (Hospitalization, Other)
  Sender: FDA-Public Use
  Company Number: DE-ROCHE-1248910

PATIENT
  Age: 76 Year
  Sex: Female
  Weight: 55.07 kg

DRUGS (5)
  1. RANIBIZUMAB [Suspect]
     Indication: DIABETIC RETINAL OEDEMA
     Route: 050
     Dates: start: 20130111
  2. RANIBIZUMAB [Suspect]
     Route: 050
     Dates: start: 20130208
  3. RANIBIZUMAB [Suspect]
     Route: 050
     Dates: start: 20130308
  4. RANIBIZUMAB [Suspect]
     Route: 050
     Dates: start: 20130916
  5. ACULAR [Concomitant]
     Dosage: EYE DROPS
     Route: 065
     Dates: start: 20131024, end: 20131024

REACTIONS (4)
  - Retinal vein occlusion [Not Recovered/Not Resolved]
  - Retinal degeneration [Unknown]
  - Blood pressure systolic increased [Unknown]
  - Fibrosis [Unknown]
